FAERS Safety Report 9776000 (Version 1)
Quarter: 2013Q4

REPORT INFORMATION
  Report Type: Spontaneous
  Country: AU (occurrence: AU)
  Receive Date: 20131220
  Receipt Date: 20131220
  Transmission Date: 20140711
  Serious: Yes (Hospitalization)
  Sender: FDA-Public Use
  Company Number: AU-009507513-1312AUS008538

PATIENT
  Age: 32 Year
  Sex: Male

DRUGS (6)
  1. ROCURONIUM BROMIDE [Suspect]
     Dosage: 70 MG, UNK
     Dates: start: 20130924
  2. CEFAZOLIN SODIUM [Suspect]
     Dosage: 1 G, UNK
     Dates: start: 20130924
  3. DEXAMETHASONE [Suspect]
     Dosage: UNK
     Dates: start: 20130924
  4. FENTANYL [Suspect]
     Dosage: 200 MICROGRAM, UNK
     Dates: start: 20130924
  5. MIDAZOLAM [Suspect]
     Dosage: 2 MG, UNK
     Dates: start: 20130924
  6. PROPOFOL [Suspect]
     Dosage: 400 MG, UNK
     Dates: start: 20130924

REACTIONS (4)
  - Tachycardia [Recovered/Resolved]
  - Oxygen saturation decreased [Recovered/Resolved]
  - Airway complication of anaesthesia [Recovered/Resolved]
  - Erythema [Recovered/Resolved]
